FAERS Safety Report 8565104-0 (Version None)
Quarter: 2012Q3

REPORT INFORMATION
  Report Type: 
  Country: None (occurrence: None)
  Receive Date: 20120803
  Receipt Date: 20120727
  Transmission Date: 20120928
  Serious: No
  Sender: FDA-Public Use
  Company Number: US-PFIZER INC-2012182621

PATIENT
  Sex: Male
  Weight: 63.492 kg

DRUGS (4)
  1. DIAZEPAM [Concomitant]
     Indication: MUSCLE RELAXANT THERAPY
     Dosage: 5 MG, 3X/DAY
  2. TRAMADOL [Concomitant]
     Indication: NEURALGIA
     Dosage: 50 MG ONE AND HALF TABLET, EVERY SIX HOURS
     Route: 048
  3. LYRICA [Suspect]
     Indication: NEURALGIA
     Dosage: 100 MG, EVERY TWELVE HOURS
     Dates: start: 20091001
  4. DARVOCET [Suspect]
     Dosage: UNK

REACTIONS (3)
  - WEIGHT DECREASED [None]
  - FATIGUE [None]
  - DRUG INEFFECTIVE [None]
